FAERS Safety Report 9021043 (Version 1)
Quarter: 2013Q1

REPORT INFORMATION
  Report Type: Spontaneous
  Country: US (occurrence: US)
  Receive Date: 20130119
  Receipt Date: 20130119
  Transmission Date: 20140127
  Serious: No
  Sender: FDA-Public Use
  Company Number: US-ALLERGAN-1204532US

PATIENT
  Age: 58 Year
  Sex: Female

DRUGS (3)
  1. BOTOX COSMETIC [Suspect]
     Indication: SKIN WRINKLING
     Dosage: 10 UNITS IN GLABELLA AND 4 UNITS IN FOREHEAD
     Route: 030
     Dates: start: 20120321, end: 20120321
  2. BOTOX COSMETIC [Suspect]
     Indication: SKIN WRINKLING
     Dosage: 36 UNITS, SINGLE
     Route: 030
     Dates: start: 20101110, end: 20101110
  3. BOTOX COSMETIC [Suspect]
     Dosage: 36 UNITS, UNK
     Route: 030
     Dates: start: 20100512, end: 20100512

REACTIONS (6)
  - Wrong technique in drug usage process [Unknown]
  - Facial paresis [Unknown]
  - Facial paresis [Unknown]
  - Eye irritation [Unknown]
  - Vision blurred [Unknown]
  - Abnormal sensation in eye [Unknown]
